FAERS Safety Report 8611680-9 (Version None)
Quarter: 2012Q3

REPORT INFORMATION
  Report Type: 
  Country: None (occurrence: None)
  Receive Date: 20120822
  Receipt Date: 20120816
  Transmission Date: 20120928
  Serious: Yes (Death)
  Sender: FDA-Public Use
  Company Number: FI-ROCHE-1072699

PATIENT
  Sex: Female

DRUGS (5)
  1. WARFARIN SODIUM [Suspect]
     Indication: PRODUCT USED FOR UNKNOWN INDICATION
  2. ENOXAPARIN SODIUM [Suspect]
  3. ENOXAPARIN SODIUM [Suspect]
     Indication: THROMBOLYSIS
     Route: 058
     Dates: start: 20100101, end: 20100101
  4. ALTEPLASE [Suspect]
     Indication: THROMBOLYSIS
     Dosage: 5 MG + 0.5 MG/HR
     Route: 013
     Dates: start: 20100101, end: 20100101
  5. HEPARIN [Suspect]
     Indication: PRODUCT USED FOR UNKNOWN INDICATION
     Dates: start: 20100101, end: 20100101

REACTIONS (1)
  - CEREBRAL HAEMORRHAGE [None]
